FAERS Safety Report 15963321 (Version 1)
Quarter: 2019Q1

REPORT INFORMATION
  Report Type: Spontaneous
  Country: US (occurrence: US)
  Receive Date: 20190214
  Receipt Date: 20190214
  Transmission Date: 20190417
  Serious: No
  Sender: FDA-Public Use
  Company Number: US-PERRIGO-18US011942

PATIENT
  Sex: Female

DRUGS (1)
  1. DESONIDE. [Suspect]
     Active Substance: DESONIDE
     Indication: DECUBITUS ULCER
     Dosage: UNKNOWN, UNKNOWN
     Route: 061

REACTIONS (1)
  - Wrong technique in product usage process [Unknown]
